FAERS Safety Report 17163381 (Version 5)
Quarter: 2020Q1

REPORT INFORMATION
  Report Type: Report from Study
  Country: US (occurrence: US)
  Receive Date: 20191217
  Receipt Date: 20200122
  Transmission Date: 20200409
  Serious: Yes (Other)
  Sender: FDA-Public Use
  Company Number: US-VIIV HEALTHCARE LIMITED-US2019GSK229631

PATIENT
  Age: 28 Year
  Sex: Female

DRUGS (3)
  1. GENVOYA [Suspect]
     Active Substance: COBICISTAT\ELVITEGRAVIR\EMTRICITABINE\TENOFOVIR ALAFENAMIDE FUMARATE
     Indication: HIV INFECTION
     Dosage: 1 DF,TAB PER CAPS
     Route: 048
  2. DOLUTEGRAVIR [Suspect]
     Active Substance: DOLUTEGRAVIR
     Indication: HIV INFECTION
     Dosage: 50 MG, QD
     Route: 048
     Dates: start: 20190614
  3. TRUVADA [Suspect]
     Active Substance: EMTRICITABINE\TENOFOVIR DISOPROXIL FUMARATE
     Indication: HIV INFECTION
     Dosage: 1 DF, TAB PER CAPS
     Route: 048
     Dates: start: 20190614

REACTIONS (5)
  - Uterine dehiscence [Unknown]
  - Live birth [Unknown]
  - Premature separation of placenta [Unknown]
  - Exposure during pregnancy [Unknown]
  - Uterine rupture [Unknown]
